FAERS Safety Report 18735830 (Version 1)
Quarter: 2021Q1

REPORT INFORMATION
  Report Type: Spontaneous
  Country: NL (occurrence: NL)
  Receive Date: 20210113
  Receipt Date: 20210113
  Transmission Date: 20210419
  Serious: Yes (Other)
  Sender: FDA-Public Use
  Company Number: NL-PFIZER INC-2021012278

PATIENT
  Sex: Female
  Weight: 60 kg

DRUGS (5)
  1. AMLODIPINE BESILATE [Suspect]
     Active Substance: AMLODIPINE BESYLATE
     Dosage: 2.5 MG, 1X/DAY HALF TABLET
     Dates: start: 20160429
  2. CARVEDILOL. [Suspect]
     Active Substance: CARVEDILOL
     Dosage: 12.5 MG, 2X/DAY (EVERY 12H)
     Dates: start: 20030206
  3. ALLOPURINOL. [Suspect]
     Active Substance: ALLOPURINOL
     Dosage: 100 MG, 1X/DAY
     Dates: start: 20041018
  4. FOSINOPRIL [Suspect]
     Active Substance: FOSINOPRIL
     Dosage: 5 MG, 1X/DAY HALF TABLET
     Dates: start: 20030206
  5. IMOVANE [Suspect]
     Active Substance: ZOPICLONE
     Dosage: 7.5 MG, 1X/DAY
     Dates: start: 20101125

REACTIONS (3)
  - Swollen tongue [Unknown]
  - Lip swelling [Unknown]
  - Salivary hypersecretion [Unknown]
